FAERS Safety Report 14813023 (Version 1)
Quarter: 2018Q2

REPORT INFORMATION
  Report Type: Spontaneous
  Country: FR (occurrence: FR)
  Receive Date: 20180426
  Receipt Date: 20180426
  Transmission Date: 20180711
  Serious: Yes (Other)
  Sender: FDA-Public Use
  Company Number: FR-MERCK KGAA-2046542

PATIENT
  Age: 68 Year
  Sex: Female

DRUGS (1)
  1. NOVOTHYROX [Suspect]
     Active Substance: LEVOTHYROXINE SODIUM
     Indication: PRODUCT USED FOR UNKNOWN INDICATION
     Dates: start: 201704

REACTIONS (23)
  - Impaired driving ability [None]
  - Gastrointestinal motility disorder [None]
  - Loss of personal independence in daily activities [None]
  - Hot flush [None]
  - Asthenia [None]
  - Asocial behaviour [None]
  - Antisocial personality disorder [None]
  - Myalgia [None]
  - Feeling abnormal [None]
  - Bilirubin conjugated increased [None]
  - Dysentery [None]
  - Tremor [None]
  - Fatigue [None]
  - Migraine [None]
  - Blood bilirubin increased [None]
  - Poor personal hygiene [None]
  - Feeling cold [None]
  - Vertigo [None]
  - Abdominal distension [None]
  - Gait disturbance [None]
  - Depressed mood [None]
  - Muscle spasms [None]
  - Nausea [None]

NARRATIVE: CASE EVENT DATE: 2017
